FAERS Safety Report 5004340-7 (Version None)
Quarter: 2006Q2

REPORT INFORMATION
  Report Type: 
  Country: None (occurrence: None)
  Receive Date: 20060517
  Receipt Date: 20060411
  Transmission Date: 20061013
  Serious: Yes (Other)
  Sender: FDA-Public Use
  Company Number: US-GLAXOSMITHKLINE-A0601407A

PATIENT
  Age: 67 Year
  Sex: Male
  Weight: 107.3 kg

DRUGS (8)
  1. WELLBUTRIN [Suspect]
     Indication: DEPRESSION
     Dosage: 300MG PER DAY
     Route: 048
     Dates: start: 20060120, end: 20060303
  2. ZOLOFT [Concomitant]
  3. VYTORIN [Concomitant]
  4. NEXIUM [Concomitant]
  5. COREG [Concomitant]
     Dosage: 6.25MG TWICE PER DAY
  6. ARICEPT [Concomitant]
  7. ERGOCALCIFEROL [Concomitant]
     Dosage: 50000IU WEEKLY
  8. UNSPECIFIED MEDICATION [Concomitant]

REACTIONS (3)
  - FALL [None]
  - LOSS OF CONSCIOUSNESS [None]
  - SENSORY DISTURBANCE [None]
